FAERS Safety Report 4474983-8 (Version None)
Quarter: 2004Q3

REPORT INFORMATION
  Report Type: 
  Country: None (occurrence: None)
  Receive Date: 20040923
  Receipt Date: 20040729
  Transmission Date: 20050211
  Serious: No
  Sender: FDA-Public Use
  Company Number: USA040671209

PATIENT
  Age: 73 Year
  Sex: Female

DRUGS (12)
  1. FORTEO [Suspect]
     Indication: OSTEOPOROSIS
     Dosage: 20 UG DAY
     Dates: start: 20040622, end: 20040624
  2. PREVACID [Concomitant]
  3. AXID [Concomitant]
  4. ATENOLOL [Concomitant]
  5. MAXZIDE [Concomitant]
  6. NORVASC [Concomitant]
  7. FLEXERIL [Concomitant]
  8. BABY ASPIRIN (ACETYLSALICYCYLIC ACID) [Concomitant]
  9. CALCIUM WITH VITAMIN D [Concomitant]
  10. VITAMIN E [Concomitant]
  11. VITAMIN B COMPLEX CAP [Concomitant]
  12. PENICILLIN (BENZYLPHENICILLIN SODIUM) [Concomitant]

REACTIONS (9)
  - ARTHRALGIA [None]
  - DYSGEUSIA [None]
  - FLANK PAIN [None]
  - GASTROOESOPHAGEAL REFLUX DISEASE [None]
  - ORAL DISCOMFORT [None]
  - PAIN [None]
  - PAIN IN JAW [None]
  - SALIVARY HYPERSECRETION [None]
  - THROAT IRRITATION [None]
